FAERS Safety Report 13134337 (Version 4)
Quarter: 2017Q2

REPORT INFORMATION
  Report Type: Other
  Country: IT (occurrence: IT)
  Receive Date: 20170120
  Receipt Date: 20170505
  Transmission Date: 20170830
  Serious: Yes (Hospitalization)
  Sender: FDA-Public Use
  Company Number: IT-CELLTRION INC.-2017IT000444

PATIENT

DRUGS (4)
  1. DIBASE [Concomitant]
     Active Substance: CHOLECALCIFEROL
     Dosage: 100.000 IU/ML INJECTABLE SOLUTION FOR ORAL AND INTRAMUSCULAR USE, 6 VIALS 1 ML1 U, UNK
     Dates: start: 20161201, end: 20170104
  2. REMSIMA [Suspect]
     Active Substance: INFLIXIMAB
     Dosage: 300 MG, TOTAL
     Route: 042
     Dates: start: 20161215, end: 20161215
  3. REMSIMA [Suspect]
     Active Substance: INFLIXIMAB
     Indication: CROHN^S DISEASE
     Dosage: 300 MG, TOTAL
     Route: 042
     Dates: start: 20161130, end: 20161130
  4. SIDERAL FORTE [Concomitant]
     Active Substance: ASCORBIC ACID\FERRIC PYROPHOSPHATE
     Indication: SUPPLEMENTATION THERAPY
     Dosage: 1CAPSULE, DAILY
     Route: 048
     Dates: start: 20161201, end: 20170104

REACTIONS (4)
  - Paraesthesia [Recovered/Resolved]
  - Hypotonia [Recovered/Resolved]
  - Motor dysfunction [Recovered/Resolved]
  - Arthralgia [Recovered/Resolved]

NARRATIVE: CASE EVENT DATE: 20161215
